FAERS Safety Report 8687416 (Version 2)
Quarter: 2013Q4

REPORT INFORMATION
  Report Type: Spontaneous
  Country: US (occurrence: US)
  Receive Date: 20120727
  Receipt Date: 20131101
  Transmission Date: 20140711
  Serious: No
  Sender: FDA-Public Use
  Company Number: US-009507513-1206USA03825

PATIENT
  Age: 73 Year
  Sex: Male

DRUGS (4)
  1. ZETIA [Suspect]
     Indication: BLOOD CHOLESTEROL DECREASED
     Dosage: 20 MG, QD
     Route: 048
     Dates: end: 20120619
  2. ZETIA [Suspect]
     Route: 048
  3. PRILOSEC [Concomitant]
  4. PROSCAR [Concomitant]
     Route: 048

REACTIONS (1)
  - Myalgia [Recovering/Resolving]
